FAERS Safety Report 6005637-4 (Version None)
Quarter: 2008Q4

REPORT INFORMATION
  Report Type: 
  Country: None (occurrence: None)
  Receive Date: 20081215
  Receipt Date: 20081202
  Transmission Date: 20090506
  Serious: Yes (Hospitalization)
  Sender: FDA-Public Use
  Company Number: GXKR2008PK11509

PATIENT
  Age: 65 Year
  Sex: Female

DRUGS (4)
  1. AMINOPHYLLINE [Suspect]
     Dosage: INFUSION
  2. BRONCHODILATORS (NO INGREDIENTS/SUBSTANCES) [Concomitant]
  3. ANTIBIOTICS (NO INGREDIENTS/SUBSTANCES) [Concomitant]
  4. STEROIDS NOS (NO INGREDIENTS/SUBSTANCES) [Concomitant]

REACTIONS (7)
  - CONDITION AGGRAVATED [None]
  - EJECTION FRACTION DECREASED [None]
  - ELECTROCARDIOGRAM ST SEGMENT ELEVATION [None]
  - RESPIRATORY DISTRESS [None]
  - STRESS CARDIOMYOPATHY [None]
  - TACHYCARDIA [None]
  - TROPONIN INCREASED [None]
